FAERS Safety Report 19452010 (Version 1)
Quarter: 2021Q2

REPORT INFORMATION
  Report Type: Spontaneous
  Country: US (occurrence: US)
  Receive Date: 20210623
  Receipt Date: 20210623
  Transmission Date: 20210717
  Serious: Yes (Death, Hospitalization)
  Sender: FDA-Public Use
  Company Number: None

PATIENT
  Age: 81 Year
  Sex: Female
  Weight: 33 kg

DRUGS (10)
  1. OXYCODONE [Concomitant]
     Active Substance: OXYCODONE
  2. OMEGA?3 (FISH OIL) [Concomitant]
  3. SEROQUEL [Concomitant]
     Active Substance: QUETIAPINE FUMARATE
  4. ACETAMINOPHEN. [Concomitant]
     Active Substance: ACETAMINOPHEN
  5. CALTRATE [Concomitant]
     Active Substance: CALCIUM CARBONATE
  6. HYDROCODONE?ACETAMINOPHEN [Concomitant]
     Active Substance: ACETAMINOPHEN\HYDROCODONE
  7. LETROZOLE. [Concomitant]
     Active Substance: LETROZOLE
  8. VITAMIN C [Concomitant]
     Active Substance: ASCORBIC ACID
  9. COREG [Suspect]
     Active Substance: CARVEDILOL
     Dates: end: 20210512
  10. BENADRYLL [Concomitant]

REACTIONS (4)
  - Hip fracture [None]
  - Pneumonia [None]
  - Fall [None]
  - Sepsis [None]

NARRATIVE: CASE EVENT DATE: 20210501
